FAERS Safety Report 14647196 (Version 2)
Quarter: 2018Q1

REPORT INFORMATION
  Report Type: Spontaneous
  Country: US (occurrence: US)
  Receive Date: 20180316
  Receipt Date: 20180316
  Transmission Date: 20180509
  Serious: No
  Sender: FDA-Public Use
  Company Number: US-PFIZER INC-2018104492

PATIENT
  Age: 79 Year
  Sex: Male
  Weight: 83.9 kg

DRUGS (2)
  1. LYRICA [Suspect]
     Active Substance: PREGABALIN
     Indication: ARTHRITIS
     Dosage: 50 MG, ONCE A DAY, (AT NIGHT, ON IT FOR TWO NIGHTS)
  2. LYRICA [Suspect]
     Active Substance: PREGABALIN
     Indication: LIGAMENT DISORDER

REACTIONS (5)
  - Pain [Not Recovered/Not Resolved]
  - Condition aggravated [Unknown]
  - Drug ineffective for unapproved indication [Unknown]
  - Somnolence [Unknown]
  - Feeling drunk [Unknown]
